FAERS Safety Report 14018523 (Version 1)
Quarter: 2017Q3

REPORT INFORMATION
  Report Type: Spontaneous
  Country: US (occurrence: US)
  Receive Date: 20170928
  Receipt Date: 20170928
  Transmission Date: 20171128
  Serious: No
  Sender: FDA-Public Use
  Company Number: None

PATIENT
  Sex: Female
  Weight: 63 kg

DRUGS (3)
  1. CETIRIZINE [Concomitant]
     Active Substance: CETIRIZINE HYDROCHLORIDE
  2. ESTRING [Suspect]
     Active Substance: ESTRADIOL
     Indication: VULVOVAGINAL DRYNESS
     Dosage: ?          QUANTITY:1 ESTRADIOL RING;OTHER FREQUENCY:EVERY 3 MONTHS;?
     Route: 067
     Dates: start: 20161020, end: 20170120
  3. BABY ASPIRIN [Concomitant]
     Active Substance: ASPIRIN

REACTIONS (5)
  - Inability to afford medication [None]
  - Pain in extremity [None]
  - Loss of personal independence in daily activities [None]
  - Impaired work ability [None]
  - Therapy cessation [None]
